FAERS Safety Report 12625902 (Version 1)
Quarter: 2016Q3

REPORT INFORMATION
  Report Type: Spontaneous
  Country: US (occurrence: US)
  Receive Date: 20160805
  Receipt Date: 20160805
  Transmission Date: 20161109
  Serious: No
  Sender: FDA-Public Use
  Company Number: US-ABBVIE-16P-163-1566811-00

PATIENT
  Age: 59 Year
  Sex: Male
  Weight: 93.89 kg

DRUGS (9)
  1. VIEKIRA PAK [Suspect]
     Active Substance: DASABUVIR\OMBITASVIR\PARITAPREVIR\RITONAVIR
     Indication: HEPATITIS C
     Dosage: 3 TABS IN AM OF 12.5MG/75MG/50MG AND ONE 270.3MG TAB AT PM (2X/ DAY)
     Route: 065
     Dates: start: 20151130
  2. RIBASPHERE [Suspect]
     Active Substance: RIBAVIRIN
     Dosage: 400 MG IN THE MORNING AND 200 MG IN THE EVENING
     Route: 065
  3. BABY ASPIRIN [Concomitant]
     Active Substance: ASPIRIN
     Indication: PRODUCT USED FOR UNKNOWN INDICATION
     Route: 065
  4. DILTIAZEM HCL SR (DILTIAZEM HYDROCHLORIDE) [Concomitant]
     Indication: ATRIAL FIBRILLATION
     Route: 065
  5. XARELTO [Concomitant]
     Active Substance: RIVAROXABAN
     Indication: ATRIAL FIBRILLATION
     Route: 065
  6. RIBASPHERE [Suspect]
     Active Substance: RIBAVIRIN
     Indication: HEPATITIS C
     Dosage: THREE 200 TABLETS TWICE A DAY IN THE MORNING AND AT NIGHT
     Route: 065
     Dates: start: 20151130
  7. VITAMIN D [Concomitant]
     Active Substance: CHOLECALCIFEROL
     Indication: TOOTH EXTRACTION
  8. FLECAINIDE [Concomitant]
     Active Substance: FLECAINIDE
     Indication: ATRIAL FIBRILLATION
     Route: 048
  9. VITAMIN D [Concomitant]
     Active Substance: CHOLECALCIFEROL
     Indication: BONE GRAFT
     Route: 065

REACTIONS (5)
  - Headache [Recovered/Resolved]
  - Pruritus [Recovered/Resolved]
  - Rash [Recovered/Resolved]
  - Fatigue [Recovered/Resolved]
  - Irritability [Unknown]

NARRATIVE: CASE EVENT DATE: 20160126
